FAERS Safety Report 17053829 (Version 1)
Quarter: 2019Q4

REPORT INFORMATION
  Report Type: Report from Study
  Country: US (occurrence: US)
  Receive Date: 20191120
  Receipt Date: 20191120
  Transmission Date: 20200122
  Serious: No
  Sender: FDA-Public Use
  Company Number: US-BEH-2019109700

PATIENT
  Age: 51 Year
  Sex: Male

DRUGS (1)
  1. HIZENTRA [Suspect]
     Active Substance: HUMAN IMMUNOGLOBULIN G
     Indication: CHRONIC INFLAMMATORY DEMYELINATING POLYRADICULONEUROPATHY
     Dosage: 270 MILLILITER (5 X 50 ML BOTTLES AND 1 X 20 ML BOTTLE), 6 NEEDLE SITES.), QW
     Route: 058
     Dates: start: 201811

REACTIONS (2)
  - Influenza like illness [Recovered/Resolved]
  - Photosensitivity reaction [Recovered/Resolved]
